FAERS Safety Report 11884907 (Version 1)
Quarter: 2016Q1

REPORT INFORMATION
  Report Type: Spontaneous
  Country: FR (occurrence: FR)
  Receive Date: 20160104
  Receipt Date: 20160104
  Transmission Date: 20160526
  Serious: Yes (Hospitalization)
  Sender: FDA-Public Use
  Company Number: FR-BRISTOL-MYERS SQUIBB COMPANY-11031804

PATIENT
  Age: 0 Day
  Sex: Male
  Weight: 3.15 kg

DRUGS (11)
  1. TRIFLUCAN [Concomitant]
     Active Substance: FLUCONAZOLE
     Indication: PRODUCT USED FOR UNKNOWN INDICATION
     Dosage: EXPOSURE DURING GESTATION
     Route: 064
     Dates: end: 20000602
  2. VITAMINS [Concomitant]
     Active Substance: VITAMINS
     Indication: PRODUCT USED FOR UNKNOWN INDICATION
     Dosage: EXPOSURE DURING GESTATION
     Route: 064
     Dates: end: 20000602
  3. ZERIT [Suspect]
     Active Substance: STAVUDINE
     Indication: HIV INFECTION
     Dosage: EXPOSURE DURING GESTATION
     Route: 064
     Dates: end: 20000602
  4. VIRAMUNE [Suspect]
     Active Substance: NEVIRAPINE
     Indication: PROPHYLAXIS
     Dosage: UNK
     Route: 065
     Dates: start: 20000603, end: 20000603
  5. ERCEFURYL [Concomitant]
     Indication: PRODUCT USED FOR UNKNOWN INDICATION
     Dosage: EXPOSURE DURING GESTATION
     Route: 064
     Dates: end: 20000602
  6. I RON [Concomitant]
     Active Substance: FERROUS FUMARATE
     Indication: PRODUCT USED FOR UNKNOWN INDICATION
     Dosage: EXPOSURE DURING GESTATION
     Route: 064
     Dates: end: 20000602
  7. VIRAMUNE [Suspect]
     Active Substance: NEVIRAPINE
     Indication: HIV INFECTION
     Dosage: EXPOSURE DURING GESTATION
     Route: 064
     Dates: end: 20000602
  8. RETROVIR [Suspect]
     Active Substance: ZIDOVUDINE
     Indication: HIV INFECTION
     Dosage: EXPOSURE AT DELIVERY 200 MG/20 ML INFUSION
     Route: 064
     Dates: start: 20000602, end: 20000602
  9. ZERIT [Suspect]
     Active Substance: STAVUDINE
     Indication: PROPHYLAXIS
     Dosage: 30 MG, QD
     Route: 048
     Dates: start: 20000602, end: 200007
  10. SPASFON [Concomitant]
     Active Substance: PHLOROGLUCINOL
     Indication: PRODUCT USED FOR UNKNOWN INDICATION
     Dosage: EXPOSURE DURING GESTATION
     Route: 064
     Dates: end: 20000602
  11. EPIVIR [Suspect]
     Active Substance: LAMIVUDINE
     Indication: HIV INFECTION
     Dosage: EXPOSURE DURING GESTATION
     Route: 064
     Dates: end: 20000602

REACTIONS (6)
  - Anaemia macrocytic [Recovered/Resolved with Sequelae]
  - Stomatitis [Unknown]
  - Hypertriglyceridaemia [Not Recovered/Not Resolved]
  - Constipation [Unknown]
  - Foetal exposure during pregnancy [Recovered/Resolved]
  - Blood lactic acid increased [Unknown]

NARRATIVE: CASE EVENT DATE: 20000602
